FAERS Safety Report 18996488 (Version 2)
Quarter: 2021Q1

REPORT INFORMATION
  Report Type: Spontaneous
  Country: IN (occurrence: IN)
  Receive Date: 20210311
  Receipt Date: 20210320
  Transmission Date: 20210420
  Serious: Yes (Hospitalization, Other)
  Sender: FDA-Public Use
  Company Number: IN-MACLEODS PHARMACEUTICALS US LTD-MAC2021030392

PATIENT

DRUGS (7)
  1. TRAMADOL HYDROCHLORIDE. [Suspect]
     Active Substance: TRAMADOL HYDROCHLORIDE
     Dosage: UNK, INJECTION
     Route: 042
     Dates: start: 2017
  2. TRAMADOL HYDROCHLORIDE. [Suspect]
     Active Substance: TRAMADOL HYDROCHLORIDE
     Dosage: UNK, QD, INJECTION
     Route: 042
  3. SERTRALINE [Concomitant]
     Active Substance: SERTRALINE HYDROCHLORIDE
     Indication: DEPRESSION
     Dosage: 150 MILLIGRAM, QD
     Route: 065
  4. TRAMADOL HYDROCHLORIDE. [Suspect]
     Active Substance: TRAMADOL HYDROCHLORIDE
     Indication: ABDOMINAL PAIN
     Dosage: UNK, PRN, 50 MG ORALLY OR INJECTION AS AND WHEN REQUIRED ONCE IN 2?3 MONTHS
     Route: 065
  5. TRAMADOL HYDROCHLORIDE. [Suspect]
     Active Substance: TRAMADOL HYDROCHLORIDE
     Dosage: UNK, PRN, INJECTION TRAMADOL ONCE IN 2?3 MONTHS
     Route: 065
     Dates: start: 2013
  6. ARIPIPRAZOLE. [Concomitant]
     Active Substance: ARIPIPRAZOLE
     Indication: DEPRESSION
     Dosage: 15 MILLIGRAM, QD
     Route: 065
  7. TRAMADOL HYDROCHLORIDE. [Suspect]
     Active Substance: TRAMADOL HYDROCHLORIDE
     Dosage: UNK, QD, INJECTION, 6?7 AMPOULES
     Route: 042

REACTIONS (13)
  - Injection site swelling [Not Recovered/Not Resolved]
  - Injection site scar [Not Recovered/Not Resolved]
  - Irritability [Recovered/Resolved]
  - Pain [Recovered/Resolved]
  - Drug abuser [Unknown]
  - Anxiety [Recovered/Resolved]
  - Intentional product misuse [Unknown]
  - Injection site extravasation [Not Recovered/Not Resolved]
  - Lacrimation increased [Recovered/Resolved]
  - Seizure [Not Recovered/Not Resolved]
  - Drug dependence [Unknown]
  - Withdrawal syndrome [Recovered/Resolved]
  - Restlessness [Recovered/Resolved]
